FAERS Safety Report 6186525-X (Version None)
Quarter: 2009Q2

REPORT INFORMATION
  Report Type: 
  Country: None (occurrence: None)
  Receive Date: 20090512
  Receipt Date: 20090507
  Transmission Date: 20091009
  Serious: No
  Sender: FDA-Public Use
  Company Number: CO-BAYER-200915808LA

PATIENT
  Age: 37 Year
  Sex: Female
  Weight: 60 kg

DRUGS (5)
  1. BETAFERON [Suspect]
     Indication: MULTIPLE SCLEROSIS
     Route: 058
     Dates: start: 20070601, end: 20090426
  2. EUTIROX [Concomitant]
     Route: 065
  3. LDOLEX [Concomitant]
     Route: 065
  4. LOVAZA [Concomitant]
     Route: 065
  5. CALCIUM [Concomitant]
     Route: 065

REACTIONS (5)
  - DERMATOSIS [None]
  - ERYTHEMA [None]
  - PRURITUS GENERALISED [None]
  - RASH [None]
  - TOXIC SKIN ERUPTION [None]
